FAERS Safety Report 24353098 (Version 1)
Quarter: 2024Q3

REPORT INFORMATION
  Report Type: Spontaneous
  Country: US (occurrence: None)
  Receive Date: 20240923
  Receipt Date: 20240923
  Transmission Date: 20241017
  Serious: No
  Sender: Public
  Company Number: None

PATIENT
  Sex: Male

DRUGS (1)
  1. CIBINQO [Suspect]
     Active Substance: ABROCITINIB
     Indication: Dermatitis atopic
     Dosage: 200 MG DAILY ORAL ?
     Route: 048
     Dates: start: 202403

REACTIONS (3)
  - Vomiting [None]
  - Diarrhoea [None]
  - Peripheral swelling [None]
